FAERS Safety Report 7987239-3 (Version None)
Quarter: 2011Q4

REPORT INFORMATION
  Report Type: 
  Country: None (occurrence: None)
  Receive Date: 20111216
  Receipt Date: 20111209
  Transmission Date: 20120403
  Serious: Yes (Hospitalization)
  Sender: FDA-Public Use
  Company Number: US-BRISTOL-MYERS SQUIBB COMPANY-14165674

PATIENT
  Age: 49 Year
  Sex: Female

DRUGS (1)
  1. IPILIMUMAB [Suspect]
     Indication: MALIGNANT MELANOMA
     Route: 042
     Dates: start: 20080220, end: 20080402

REACTIONS (5)
  - DYSPNOEA [None]
  - DEHYDRATION [None]
  - ALKALOSIS [None]
  - ELECTROLYTE IMBALANCE [None]
  - NEOPLASM MALIGNANT [None]
